FAERS Safety Report 12860235 (Version 1)
Quarter: 2016Q4

REPORT INFORMATION
  Report Type: Spontaneous
  Country: US (occurrence: US)
  Receive Date: 20161019
  Receipt Date: 20161019
  Transmission Date: 20170207
  Serious: Yes (Other)
  Sender: FDA-Public Use
  Company Number: US-CIPLA LTD.-2016US19336

PATIENT

DRUGS (8)
  1. TRIAMCINOLONE [Interacting]
     Active Substance: TRIAMCINOLONE
     Indication: NECK PAIN
     Dosage: 40 MG, AT C7-T1
     Route: 008
  2. TENOFOVIR/EMTRICITABINE [Suspect]
     Active Substance: EMTRICITABINE\TENOFOVIR
     Indication: HIV INFECTION
     Dosage: 300/200 MG TABLET, DAILY
     Route: 065
     Dates: start: 201206
  3. RITONAVIR. [Suspect]
     Active Substance: RITONAVIR
     Indication: HIV INFECTION
     Dosage: 100 MG, QD
     Route: 048
     Dates: start: 201206
  4. ATAZANAVIR [Suspect]
     Active Substance: ATAZANAVIR
     Indication: HIV INFECTION
     Dosage: 300 MG, QD
     Route: 065
     Dates: start: 201206
  5. TRIAMCINOLONE [Interacting]
     Active Substance: TRIAMCINOLONE
     Dosage: TOTAL DOSE OF 60 MG
     Route: 008
  6. DEXAMETHASONE. [Suspect]
     Active Substance: DEXAMETHASONE
     Indication: NECK PAIN
     Dosage: 6 MG, UNK
     Route: 065
  7. TRIAMCINOLONE [Interacting]
     Active Substance: TRIAMCINOLONE
     Indication: PAIN IN EXTREMITY
     Dosage: 20 MG, INTO RIGHT TROCHANTERIC BURSA
     Route: 052
  8. DEXAMETHASONE. [Suspect]
     Active Substance: DEXAMETHASONE
     Indication: PAIN IN EXTREMITY

REACTIONS (4)
  - Drug interaction [Unknown]
  - Rash generalised [Recovered/Resolved]
  - Secondary adrenocortical insufficiency [Recovered/Resolved]
  - Cushing^s syndrome [Recovered/Resolved]
